FAERS Safety Report 10149811 (Version 1)
Quarter: 2014Q2

REPORT INFORMATION
  Report Type: Spontaneous
  Country: AU (occurrence: None)
  Receive Date: 20140430
  Receipt Date: 20140430
  Transmission Date: 20141212
  Serious: No
  Sender: FDA-Public Use
  Company Number: B0988224A

PATIENT
  Age: 33 Year
  Sex: Female

DRUGS (1)
  1. PAROXETINE HYDROCHLORIDE [Suspect]
     Indication: ANXIETY

REACTIONS (7)
  - Suicidal ideation [None]
  - Nightmare [None]
  - Dizziness [None]
  - Fluid retention [None]
  - Abdominal distension [None]
  - Mood swings [None]
  - Road traffic accident [None]
